FAERS Safety Report 13520443 (Version 2)
Quarter: 2017Q3

REPORT INFORMATION
  Report Type: Report from Study
  Country: None (occurrence: CA)
  Receive Date: 20170507
  Receipt Date: 20170917
  Transmission Date: 20171127
  Serious: Yes (Hospitalization, Other)
  Sender: FDA-Public Use
  Company Number: CA-ABBVIE-16K-028-1783142-00

PATIENT
  Age: 74 Year
  Sex: Female
  Weight: 85 kg

DRUGS (7)
  1. METHOTREXATE. [Concomitant]
     Active Substance: METHOTREXATE
     Indication: RHEUMATOID ARTHRITIS
     Route: 058
     Dates: start: 199706
  2. SENOKOT [Concomitant]
     Active Substance: SENNOSIDES
     Indication: PRODUCT USED FOR UNKNOWN INDICATION
  3. PREDNISONE. [Concomitant]
     Active Substance: PREDNISONE
     Indication: RHEUMATOID ARTHRITIS
     Route: 048
     Dates: start: 1981
  4. HUMIRA [Suspect]
     Active Substance: ADALIMUMAB
     Route: 058
     Dates: start: 20170426, end: 20170719
  5. HUMIRA [Suspect]
     Active Substance: ADALIMUMAB
     Indication: RHEUMATOID ARTHRITIS
     Route: 058
     Dates: start: 200502, end: 201611
  6. HUMIRA [Suspect]
     Active Substance: ADALIMUMAB
     Route: 058
     Dates: start: 20161130, end: 201701
  7. LACTULOSE. [Concomitant]
     Active Substance: LACTULOSE
     Indication: PRODUCT USED FOR UNKNOWN INDICATION

REACTIONS (11)
  - Uterine prolapse [Unknown]
  - Dehydration [Not Recovered/Not Resolved]
  - Heat stroke [Unknown]
  - Rectocele [Unknown]
  - Urinary tract infection bacterial [Recovered/Resolved]
  - Tachycardia [Recovered/Resolved]
  - Bronchitis [Recovered/Resolved]
  - Surgery [Not Recovered/Not Resolved]
  - Cystocele [Unknown]
  - Gastrointestinal infection [Unknown]
  - Clostridium difficile infection [Unknown]

NARRATIVE: CASE EVENT DATE: 2016
